FAERS Safety Report 20779123 (Version 1)
Quarter: 2022Q2

REPORT INFORMATION
  Report Type: Spontaneous
  Country: US (occurrence: US)
  Receive Date: 20220503
  Receipt Date: 20220503
  Transmission Date: 20220721
  Serious: No
  Sender: FDA-Public Use
  Company Number: US-PFIZER INC-2019058156

PATIENT
  Age: 54 Year
  Sex: Male

DRUGS (2)
  1. VIAGRA [Suspect]
     Active Substance: SILDENAFIL CITRATE
     Indication: Prostatectomy
     Dosage: UNK, 1X/DAY (1/2-1 TAB ONCE DAILY 30-60 MINUTES BEFORE INTERCOURSE UP TO 5 TIMES PER WEEK)
  2. VIAGRA [Suspect]
     Active Substance: SILDENAFIL CITRATE
     Indication: Sexual dysfunction

REACTIONS (1)
  - Drug ineffective [Unknown]
